FAERS Safety Report 15028019 (Version 1)
Quarter: 2018Q2

REPORT INFORMATION
  Report Type: Spontaneous
  Country: US (occurrence: US)
  Receive Date: 20180619
  Receipt Date: 20180619
  Transmission Date: 20180711
  Serious: Yes (Other)
  Sender: FDA-Public Use
  Company Number: US-009507513-1806USA004908

PATIENT
  Age: 33 Year
  Sex: Female

DRUGS (1)
  1. NEXPLANON [Suspect]
     Active Substance: ETONOGESTREL
     Indication: CONTRACEPTION
     Dosage: 68 MG IMPLANT, ONCE
     Route: 059
     Dates: start: 20171210

REACTIONS (3)
  - Implant site reaction [Unknown]
  - Uterine haemorrhage [Not Recovered/Not Resolved]
  - Administration site discomfort [Unknown]

NARRATIVE: CASE EVENT DATE: 20171210
